FAERS Safety Report 6237897-9 (Version None)
Quarter: 2009Q2

REPORT INFORMATION
  Report Type: 
  Country: None (occurrence: None)
  Receive Date: 20090620
  Receipt Date: 20090608
  Transmission Date: 20091009
  Serious: Yes (Death)
  Sender: FDA-Public Use
  Company Number: AU-MYLANLABS-2009S1010153

PATIENT
  Age: 61 Year
  Sex: Female

DRUGS (5)
  1. METFORMIN HCL [Suspect]
     Indication: DRUG USE FOR UNKNOWN INDICATION
  2. FUROSEMIDE [Suspect]
     Indication: DRUG USE FOR UNKNOWN INDICATION
  3. BLOPRESS PLUS [Suspect]
     Indication: DRUG USE FOR UNKNOWN INDICATION
  4. GLICLAZIDE [Concomitant]
  5. QUINAPRIL [Concomitant]

REACTIONS (5)
  - DEHYDRATION [None]
  - DIARRHOEA [None]
  - LACTIC ACIDOSIS [None]
  - RENAL FAILURE ACUTE [None]
  - SHOCK [None]
